FAERS Safety Report 12532146 (Version 3)
Quarter: 2016Q3

REPORT INFORMATION
  Report Type: Report from Study
  Country: US (occurrence: US)
  Receive Date: 20160706
  Receipt Date: 20160720
  Transmission Date: 20161109
  Serious: Yes (Other)
  Sender: FDA-Public Use
  Company Number: US-ABBVIE-16K-163-1663824-00

PATIENT
  Age: 33 Year
  Sex: Female

DRUGS (1)
  1. HUMIRA [Suspect]
     Active Substance: ADALIMUMAB
     Indication: CROHN^S DISEASE
     Route: 058
     Dates: start: 20130701

REACTIONS (7)
  - Decreased appetite [Unknown]
  - Nasal discharge discolouration [Not Recovered/Not Resolved]
  - Diarrhoea [Unknown]
  - Abnormal faeces [Unknown]
  - Rhinorrhoea [Not Recovered/Not Resolved]
  - Rectal haemorrhage [Unknown]
  - Abdominal pain upper [Unknown]

NARRATIVE: CASE EVENT DATE: 201605
